FAERS Safety Report 13788299 (Version 1)
Quarter: 2017Q3

REPORT INFORMATION
  Report Type: Spontaneous
  Country: US (occurrence: US)
  Receive Date: 20170725
  Receipt Date: 20170725
  Transmission Date: 20171127
  Serious: Yes (Hospitalization, Other)
  Sender: FDA-Public Use
  Company Number: US-JNJFOC-20170606706

PATIENT
  Age: 69 Year
  Sex: Male

DRUGS (9)
  1. CEFALEXIN [Concomitant]
     Active Substance: CEPHALEXIN
  2. FISH OIL [Concomitant]
     Active Substance: FISH OIL
     Route: 048
  3. TRADJENTA [Concomitant]
     Active Substance: LINAGLIPTIN
     Route: 048
  4. GLIMEPIRIDE. [Concomitant]
     Active Substance: GLIMEPIRIDE
  5. METFORMIN [Concomitant]
     Active Substance: METFORMIN HYDROCHLORIDE
     Route: 048
  6. OMEPRAZOLE. [Concomitant]
     Active Substance: OMEPRAZOLE
     Route: 048
  7. SPIRIVA [Concomitant]
     Active Substance: TIOTROPIUM BROMIDE MONOHYDRATE
     Dosage: 18 MCG, QD
     Route: 048
  8. IMBRUVICA [Suspect]
     Active Substance: IBRUTINIB
     Indication: MANTLE CELL LYMPHOMA
     Route: 048
     Dates: start: 20170301, end: 20170516
  9. FENOFIBRATE. [Concomitant]
     Active Substance: FENOFIBRATE

REACTIONS (6)
  - Off label use [Recovered/Resolved]
  - Product use issue [Recovered/Resolved]
  - Skin abrasion [Unknown]
  - Disease progression [Unknown]
  - Wound secretion [Unknown]
  - Pyrexia [Recovered/Resolved]

NARRATIVE: CASE EVENT DATE: 20170301
